FAERS Safety Report 9278385 (Version 1)
Quarter: 2013Q2

REPORT INFORMATION
  Report Type: Spontaneous
  Country: SK (occurrence: SK)
  Receive Date: 20130508
  Receipt Date: 20130508
  Transmission Date: 20140414
  Serious: Yes (Life-Threatening, Hospitalization, Disabling, Other)
  Sender: FDA-Public Use
  Company Number: SK-SANOFI-AVENTIS-2013SA046027

PATIENT
  Age: 71 Year
  Sex: Female
  Weight: 66 kg

DRUGS (18)
  1. CLOPIDOGREL BISULFATE [Suspect]
     Indication: ACUTE CORONARY SYNDROME
     Route: 048
     Dates: start: 20121031, end: 20121031
  2. CLOPIDOGREL BISULFATE [Suspect]
     Indication: ACUTE CORONARY SYNDROME
     Route: 048
     Dates: start: 20121101, end: 20121102
  3. CLOPIDOGREL BISULFATE [Suspect]
     Indication: ACUTE CORONARY SYNDROME
     Route: 048
     Dates: start: 20121104, end: 20121116
  4. ANOPYRIN [Suspect]
     Indication: ACUTE CORONARY SYNDROME
     Route: 048
     Dates: start: 20121031, end: 20121031
  5. ANOPYRIN [Suspect]
     Indication: ACUTE CORONARY SYNDROME
     Route: 048
     Dates: start: 20121101, end: 20121102
  6. ANOPYRIN [Suspect]
     Indication: ACUTE CORONARY SYNDROME
     Route: 048
     Dates: start: 20121104, end: 20121116
  7. BLINDED THERAPY [Suspect]
     Indication: ACUTE CORONARY SYNDROME
     Route: 042
     Dates: start: 20121102, end: 20121102
  8. DITHIADEN [Concomitant]
     Route: 065
     Dates: start: 20121102, end: 20121102
  9. FURON [Concomitant]
     Dates: start: 20121031
  10. LEVOTHYROXINE [Concomitant]
     Dates: start: 2000
  11. BUDESONIDE [Concomitant]
     Dates: start: 2000
  12. FORMOTEROL [Concomitant]
     Dates: start: 2000
  13. TIOTROPIUM [Concomitant]
     Dates: start: 2000
  14. ATORVASTATIN [Concomitant]
     Dates: start: 20121031
  15. ALPRAZOLAM [Concomitant]
     Dates: start: 20121031
  16. CITALOPRAM [Concomitant]
     Dates: start: 20121031, end: 20121102
  17. BISOPROLOL [Concomitant]
     Dates: start: 20121102
  18. TRANDOLAPRIL [Concomitant]
     Dates: start: 20121102

REACTIONS (1)
  - Cardiogenic shock [Not Recovered/Not Resolved]
